FAERS Safety Report 5483186-X (Version None)
Quarter: 2007Q4

REPORT INFORMATION
  Report Type: 
  Country: None (occurrence: None)
  Receive Date: 20071009
  Receipt Date: 20071003
  Transmission Date: 20080405
  Serious: Yes (Other)
  Sender: FDA-Public Use
  Company Number: 2007SP019945

PATIENT
  Sex: Female

DRUGS (2)
  1. DESLORATADINE [Suspect]
     Indication: ALLERGY PROPHYLAXIS
     Dosage: PO
     Route: 048
     Dates: start: 20071001
  2. BETAMETHASONE [Suspect]
     Indication: ALLERGY PROPHYLAXIS
     Dates: start: 20071001

REACTIONS (2)
  - ERYTHEMA [None]
  - FACE OEDEMA [None]
